FAERS Safety Report 15863653 (Version 1)
Quarter: 2019Q1

REPORT INFORMATION
  Report Type: Spontaneous
  Country: US (occurrence: US)
  Receive Date: 20190124
  Receipt Date: 20190124
  Transmission Date: 20190417
  Serious: Yes (Death)
  Sender: FDA-Public Use
  Company Number: US-COVIS PHARMA B.V.-2019COV00019

PATIENT
  Age: 57 Year
  Sex: Female

DRUGS (7)
  1. LOSARTAN. [Suspect]
     Active Substance: LOSARTAN
     Route: 048
  2. CHOLECALCIFEROL [Suspect]
     Active Substance: CHOLECALCIFEROL
     Route: 048
  3. APIXABAN [Suspect]
     Active Substance: APIXABAN
     Route: 048
  4. SOTALOL. [Suspect]
     Active Substance: SOTALOL
     Route: 048
  5. DILTIAZEM (EXTENDED-RELEASE) [Suspect]
     Active Substance: DILTIAZEM
     Route: 048
  6. FOLIC ACID. [Suspect]
     Active Substance: FOLIC ACID
     Route: 048
  7. ALCOHOL. [Suspect]
     Active Substance: ALCOHOL
     Route: 048

REACTIONS (2)
  - Completed suicide [Fatal]
  - Toxicity to various agents [Fatal]
